FAERS Safety Report 21849136 (Version 9)
Quarter: 2024Q3

REPORT INFORMATION
  Report Type: Spontaneous
  Country: US (occurrence: US)
  Receive Date: 20230111
  Receipt Date: 20240802
  Transmission Date: 20241017
  Serious: Yes (Hospitalization, Other)
  Sender: PFIZER
  Company Number: US-PFIZER INC-PV202200121979

PATIENT
  Age: 72 Year
  Sex: Female
  Weight: 77.098 kg

DRUGS (5)
  1. IBRANCE [Suspect]
     Active Substance: PALBOCICLIB
     Indication: Breast cancer metastatic
     Dosage: 125 MG, 1X/DAY
     Route: 048
     Dates: start: 2019, end: 20221003
  2. IBRANCE [Suspect]
     Active Substance: PALBOCICLIB
     Indication: BRCA1 gene mutation
     Dosage: ONE CAPSULE DAILY FOR 21 DAYS THEN 7 DAYS
     Route: 048
     Dates: start: 20220518
  3. IBRANCE [Suspect]
     Active Substance: PALBOCICLIB
     Dosage: 100 MG, 1X/DAY
     Route: 048
     Dates: start: 20221003
  4. LETROZOLE [Concomitant]
     Active Substance: LETROZOLE
     Indication: BRCA1 gene mutation
     Dosage: UNK
     Dates: start: 2019
  5. LETROZOLE [Concomitant]
     Active Substance: LETROZOLE
     Dosage: 2.5 QD (ONCE A DAY)
     Dates: start: 20220926

REACTIONS (3)
  - White blood cell count decreased [Recovered/Resolved]
  - Depressed level of consciousness [Recovering/Resolving]
  - Amnesia [Recovered/Resolved]

NARRATIVE: CASE EVENT DATE: 20221003
